FAERS Safety Report 5248000-6 (Version None)
Quarter: 2007Q1

REPORT INFORMATION
  Report Type: 
  Country: None (occurrence: None)
  Receive Date: 20070226
  Receipt Date: 20070226
  Transmission Date: 20070707
  Serious: Yes (Life-Threatening, Hospitalization)
  Sender: FDA-Public Use
  Company Number: None

PATIENT
  Age: 72 Year
  Sex: Female

DRUGS (4)
  1. DEPO-MEDROL [Suspect]
     Indication: BRONCHITIS
     Dosage: UNKNOWN -40MG?- 1TIME IM   1 DOSE
     Route: 030
     Dates: start: 20061003, end: 20061003
  2. DEPO-MEDROL [Suspect]
     Indication: COUGH
     Dosage: UNKNOWN -40MG?- 1TIME IM   1 DOSE
     Route: 030
     Dates: start: 20061003, end: 20061003
  3. DEPO-MEDROL [Concomitant]
  4. ALBUTEROL [Concomitant]

REACTIONS (2)
  - LOSS OF CONSCIOUSNESS [None]
  - RESPIRATORY DISTRESS [None]
